FAERS Safety Report 12007264 (Version 2)
Quarter: 2016Q1

REPORT INFORMATION
  Report Type: Spontaneous
  Country: DE (occurrence: DE)
  Receive Date: 20160204
  Receipt Date: 20160219
  Transmission Date: 20160526
  Serious: Yes (Other)
  Sender: FDA-Public Use
  Company Number: DE-TEVA-631300GER

PATIENT
  Age: 28 Year
  Sex: Female

DRUGS (9)
  1. PREDNISOLONE. [Suspect]
     Active Substance: PREDNISOLONE
     Indication: IMMUNOSUPPRESSION
     Dosage: IMMUNOSUPPRESSION AT DISCHARGE
     Route: 065
  2. PREDNISOLONE. [Suspect]
     Active Substance: PREDNISOLONE
     Dosage: IMMUNOSUPPRESSION AFTER 3.5 YEARS POST-TRANSPLANT
     Route: 065
  3. TACROLIMUS. [Suspect]
     Active Substance: TACROLIMUS
     Route: 065
  4. MYCOPHENOLATE MOFETIL. [Suspect]
     Active Substance: MYCOPHENOLATE MOFETIL
     Indication: IMMUNOSUPPRESSION
     Route: 065
  5. ISONIAZID. [Concomitant]
     Active Substance: ISONIAZID
  6. ABACAVIR. [Concomitant]
     Active Substance: ABACAVIR
     Indication: IMMUNOSUPPRESSANT DRUG THERAPY
     Dosage: IMMUNOSUPPRESSION AFTER 3.5 YEARS POST-TRANSPLANT
  7. ABACAVIR. [Concomitant]
     Active Substance: ABACAVIR
     Indication: IMMUNOSUPPRESSANT DRUG THERAPY
     Dosage: EIGHTEEN MONTHS AFTER RENAL TRANSPLANTATION
  8. STAVUDINE. [Concomitant]
     Active Substance: STAVUDINE
     Indication: IMMUNOSUPPRESSANT DRUG THERAPY
  9. TACROLIMUS. [Suspect]
     Active Substance: TACROLIMUS
     Indication: IMMUNOSUPPRESSION
     Route: 065

REACTIONS (1)
  - Polyomavirus-associated nephropathy [Recovering/Resolving]
